FAERS Safety Report 26019420 (Version 3)
Quarter: 2025Q4

REPORT INFORMATION
  Report Type: Spontaneous
  Country: US (occurrence: US)
  Receive Date: 20251110
  Receipt Date: 20251128
  Transmission Date: 20260117
  Serious: No
  Sender: ELI LILLY AND COMPANY
  Company Number: US-ELI_LILLY_AND_COMPANY-US202511004063

PATIENT
  Age: 78 Year
  Sex: Female

DRUGS (3)
  1. ZEPBOUND [Suspect]
     Active Substance: TIRZEPATIDE
     Indication: Weight control
     Dosage: 2.5 MG, UNKNOWN
     Route: 065
     Dates: end: 20251112
  2. ZEPBOUND [Suspect]
     Active Substance: TIRZEPATIDE
     Indication: Myalgia
  3. ZEPBOUND [Suspect]
     Active Substance: TIRZEPATIDE
     Indication: Anxiety

REACTIONS (3)
  - Myalgia [Not Recovered/Not Resolved]
  - Extra dose administered [Unknown]
  - Lip swelling [Unknown]
